FAERS Safety Report 8862793 (Version 1)
Quarter: 2012Q4

REPORT INFORMATION
  Report Type: 
  Country: US (occurrence: US)
  Receive Date: 20121026
  Receipt Date: 20121026
  Transmission Date: 20130627
  Serious: Yes (Other)
  Sender: FDA-Public Use
  Company Number: US-JNJFOC-20121007619

PATIENT
  Age: 10 Year
  Sex: Male
  Weight: 22.68 kg

DRUGS (3)
  1. INVEGA [Suspect]
     Indication: PRODUCT USED FOR UNKNOWN INDICATION
     Route: 048
     Dates: start: 20121009, end: 20121010
  2. INTUNIV [Suspect]
     Indication: PRODUCT USED FOR UNKNOWN INDICATION
     Route: 065
  3. CEFPROZIL [Concomitant]
     Indication: PHARYNGITIS STREPTOCOCCAL
     Dosage: 250mg/one teaspoon/BID
     Route: 048
     Dates: start: 20121001, end: 20121010

REACTIONS (5)
  - Headache [Not Recovered/Not Resolved]
  - Drug dispensing error [Unknown]
  - Wrong drug administered [Unknown]
  - Sluggishness [Not Recovered/Not Resolved]
  - Hyperhidrosis [Not Recovered/Not Resolved]
